FAERS Safety Report 4855784-5 (Version None)
Quarter: 2005Q4

REPORT INFORMATION
  Report Type: 
  Country: None (occurrence: None)
  Receive Date: 20051216
  Receipt Date: 20051005
  Transmission Date: 20060501
  Serious: Yes (Disabling)
  Sender: FDA-Public Use
  Company Number: US-MERCK-0510USA04032

PATIENT
  Age: 46 Year
  Sex: Female
  Weight: 102 kg

DRUGS (1)
  1. VIOXX [Suspect]
     Indication: PAIN
     Route: 048
     Dates: start: 20010101, end: 20030101

REACTIONS (6)
  - ANXIETY [None]
  - CARDIOVASCULAR DISORDER [None]
  - DEPRESSION [None]
  - FIBROMYALGIA [None]
  - HEART RATE INCREASED [None]
  - MYOCARDIAL INFARCTION [None]
